FAERS Safety Report 19153039 (Version 1)
Quarter: 2021Q2

REPORT INFORMATION
  Report Type: Spontaneous
  Country: US (occurrence: US)
  Receive Date: 20210419
  Receipt Date: 20210419
  Transmission Date: 20210717
  Serious: Yes (Hospitalization)
  Sender: FDA-Public Use
  Company Number: US-UNICHEM PHARMACEUTICALS (USA) INC-UCM202104-000326

PATIENT
  Age: 2 Year
  Sex: Male

DRUGS (1)
  1. CLONIDINE HCL [Suspect]
     Active Substance: CLONIDINE HYDROCHLORIDE
     Indication: ACCIDENTAL OVERDOSE
     Dosage: 6?12 PILLS OF 0.05 MG

REACTIONS (9)
  - Hyporesponsive to stimuli [Recovered/Resolved]
  - Illiteracy [Recovered/Resolved]
  - Somnolence [Recovered/Resolved]
  - Bradycardia [Recovered/Resolved]
  - Blood pressure abnormal [Recovered/Resolved]
  - Accidental exposure to product by child [Unknown]
  - Moaning [Recovered/Resolved]
  - Accidental overdose [Unknown]
  - Tachycardia [Recovered/Resolved]
